FAERS Safety Report 9337639 (Version 1)
Quarter: 2013Q2

REPORT INFORMATION
  Report Type: Spontaneous
  Country: BR (occurrence: BR)
  Receive Date: 20130607
  Receipt Date: 20130607
  Transmission Date: 20140414
  Serious: Yes (Other)
  Sender: FDA-Public Use
  Company Number: BR-ASTRAZENECA-2013SE38222

PATIENT
  Age: 266 Month
  Sex: Male
  Weight: 98 kg

DRUGS (4)
  1. ATACAND [Suspect]
     Route: 048
     Dates: start: 201209
  2. NEXIUM [Suspect]
     Indication: GASTRITIS PROPHYLAXIS
     Route: 048
     Dates: start: 201209
  3. CRESTOR [Suspect]
     Route: 048
     Dates: start: 201209
  4. BRILINTA [Suspect]
     Indication: DIABETES MELLITUS
     Route: 048
     Dates: start: 201304

REACTIONS (2)
  - Diabetes mellitus [Unknown]
  - Off label use [Not Recovered/Not Resolved]
